FAERS Safety Report 20702676 (Version 1)
Quarter: 2022Q2

REPORT INFORMATION
  Report Type: Spontaneous
  Country: HR (occurrence: HR)
  Receive Date: 20220412
  Receipt Date: 20220412
  Transmission Date: 20220721
  Serious: Yes (Hospitalization, Other)
  Sender: FDA-Public Use
  Company Number: HR-009507513-2204HRV003667

PATIENT
  Age: 68 Year
  Sex: Male

DRUGS (2)
  1. KEYTRUDA [Suspect]
     Active Substance: PEMBROLIZUMAB
     Indication: Lung adenocarcinoma stage IV
     Dosage: UNK
     Dates: start: 201906, end: 202002
  2. XARELTO [Concomitant]
     Active Substance: RIVAROXABAN
     Dosage: UNK

REACTIONS (11)
  - Disseminated intravascular coagulation [Unknown]
  - Polyuria [Unknown]
  - Pulmonary embolism [Unknown]
  - Ill-defined disorder [Unknown]
  - Malignant neoplasm progression [Unknown]
  - Thrombocytopenia [Recovering/Resolving]
  - Immune thrombocytopenia [Unknown]
  - Dehydration [Unknown]
  - Pleural effusion [Unknown]
  - Lymphadenopathy [Unknown]
  - Lung disorder [Unknown]

NARRATIVE: CASE EVENT DATE: 20191001
